FAERS Safety Report 16641082 (Version 2)
Quarter: 2019Q3

REPORT INFORMATION
  Report Type: Spontaneous
  Country: US (occurrence: US)
  Receive Date: 20190729
  Receipt Date: 20190729
  Transmission Date: 20191004
  Serious: No
  Sender: FDA-Public Use
  Company Number: US-SHIRE-US201923770

PATIENT
  Age: 10 Year
  Sex: Male
  Weight: 40.82 kg

DRUGS (1)
  1. INTUNIV [Suspect]
     Active Substance: GUANFACINE HYDROCHLORIDE
     Indication: ANGER
     Dosage: 2 MILLIGRAM, 1X/DAY:QD
     Route: 048
     Dates: start: 201905

REACTIONS (12)
  - Hypokinesia [Not Recovered/Not Resolved]
  - Abnormal behaviour [Not Recovered/Not Resolved]
  - Fall [Not Recovered/Not Resolved]
  - Fatigue [Not Recovered/Not Resolved]
  - Hypoacusis [Not Recovered/Not Resolved]
  - Depression [Not Recovered/Not Resolved]
  - Drug ineffective for unapproved indication [Not Recovered/Not Resolved]
  - Sedation [Not Recovered/Not Resolved]
  - Product use in unapproved indication [Not Recovered/Not Resolved]
  - Visual impairment [Not Recovered/Not Resolved]
  - Malaise [Not Recovered/Not Resolved]
  - Dizziness [Not Recovered/Not Resolved]

NARRATIVE: CASE EVENT DATE: 20190518
